FAERS Safety Report 6882654-3 (Version None)
Quarter: 2010Q3

REPORT INFORMATION
  Report Type: 
  Country: None (occurrence: None)
  Receive Date: 20100701
  Receipt Date: 20100402
  Transmission Date: 20110219
  Serious: Yes (Other)
  Sender: FDA-Public Use
  Company Number: 229916USA

PATIENT
  Sex: Female

DRUGS (1)
  1. SEASONIQUE [Suspect]
     Dosage: ORAL
     Route: 048

REACTIONS (2)
  - DEEP VEIN THROMBOSIS [None]
  - THROMBOSIS [None]
